FAERS Safety Report 14940950 (Version 1)
Quarter: 2018Q2

REPORT INFORMATION
  Report Type: Spontaneous
  Country: US (occurrence: US)
  Receive Date: 20180525
  Receipt Date: 20180525
  Transmission Date: 20180711
  Serious: Yes (Hospitalization, Other)
  Sender: FDA-Public Use
  Company Number: US-SHIRE-US201818864

PATIENT
  Age: 71 Year
  Sex: Female
  Weight: 54.42 kg

DRUGS (1)
  1. XIIDRA [Suspect]
     Active Substance: LIFITEGRAST
     Indication: DRY EYE
     Dosage: 5% GTT, UNK
     Route: 047
     Dates: start: 201711, end: 20180509

REACTIONS (7)
  - Time perception altered [Unknown]
  - Product quality issue [Unknown]
  - Oesophageal perforation [Not Recovered/Not Resolved]
  - Vision blurred [Recovered/Resolved]
  - Instillation site reaction [Unknown]
  - Excessive eye blinking [Recovered/Resolved]
  - Irritability [Not Recovered/Not Resolved]

NARRATIVE: CASE EVENT DATE: 201711
